FAERS Safety Report 15401579 (Version 1)
Quarter: 2018Q3

REPORT INFORMATION
  Report Type: Spontaneous
  Country: US (occurrence: US)
  Receive Date: 20180914
  Receipt Date: 20180914
  Transmission Date: 20181010
  Serious: Yes (Other)
  Sender: FDA-Public Use
  Company Number: None

PATIENT
  Age: 46 Year
  Sex: Male

DRUGS (1)
  1. QUETIAPINE 400MG [Suspect]
     Active Substance: QUETIAPINE
     Indication: BIPOLAR DISORDER
     Dosage: ?          OTHER FREQUENCY:1 QHS;?
     Route: 048
     Dates: start: 20180721, end: 20180831

REACTIONS (2)
  - Restless legs syndrome [None]
  - Pain in extremity [None]

NARRATIVE: CASE EVENT DATE: 20180808
